FAERS Safety Report 15095847 (Version 1)
Quarter: 2018Q3

REPORT INFORMATION
  Report Type: Spontaneous
  Country: FR (occurrence: FR)
  Receive Date: 20180702
  Receipt Date: 20180702
  Transmission Date: 20181010
  Serious: Yes (Other)
  Sender: FDA-Public Use
  Company Number: FR-ZYDUS-020717

PATIENT
  Age: 14 Year
  Sex: Male

DRUGS (8)
  1. TRAMADOL. [Suspect]
     Active Substance: TRAMADOL
     Indication: OSTEOSARCOMA
     Route: 065
  2. MESNA. [Concomitant]
     Active Substance: MESNA
     Indication: CHEMOTHERAPY
     Route: 065
  3. ONDANSETRON [Interacting]
     Active Substance: ONDANSETRON
     Indication: OSTEOSARCOMA
     Route: 065
  4. ETOPOSIDE. [Concomitant]
     Active Substance: ETOPOSIDE
     Indication: CHEMOTHERAPY
     Route: 065
  5. MORPHINE [Concomitant]
     Active Substance: MORPHINE
     Indication: OSTEOSARCOMA
     Route: 065
  6. METHOTREXATE/METHOTREXATE SODIUM [Concomitant]
     Indication: CHEMOTHERAPY
     Route: 041
  7. IFOSFAMIDE. [Interacting]
     Active Substance: IFOSFAMIDE
     Indication: PRODUCT USED FOR UNKNOWN INDICATION
     Route: 065
  8. METHOTREXATE/METHOTREXATE SODIUM [Concomitant]
     Indication: CHEMOTHERAPY
     Route: 041

REACTIONS (4)
  - Drug interaction [Unknown]
  - Encephalopathy [Recovered/Resolved]
  - Disorientation [Recovered/Resolved]
  - Electroencephalogram abnormal [Recovered/Resolved]
